FAERS Safety Report 6765974-2 (Version None)
Quarter: 2010Q2

REPORT INFORMATION
  Report Type: 
  Country: None (occurrence: None)
  Receive Date: 20100609
  Receipt Date: 20100525
  Transmission Date: 20101027
  Serious: Yes (Hospitalization, Other)
  Sender: FDA-Public Use
  Company Number: MC201000161

PATIENT
  Age: 74 Year
  Sex: Male

DRUGS (7)
  1. ANGIOMAX [Suspect]
     Indication: CORONARY ANGIOPLASTY
     Dates: start: 20100421, end: 20100421
  2. HEPARIN [Suspect]
     Indication: PERCUTANEOUS CORONARY INTERVENTION
  3. PLAVIX [Concomitant]
  4. BISOPROLOL FUMARATE [Concomitant]
  5. ATORVASTATIN CALCIUM [Concomitant]
  6. RAMIPRIL [Concomitant]
  7. DIFFU-K [Concomitant]

REACTIONS (10)
  - ANURIA [None]
  - ARTERIAL INJURY [None]
  - COMPARTMENT SYNDROME [None]
  - GASTRITIS EROSIVE [None]
  - GASTROOESOPHAGEAL REFLUX DISEASE [None]
  - HAEMATOMA [None]
  - INFLAMMATION [None]
  - RHABDOMYOLYSIS [None]
  - SKIN NECROSIS [None]
  - VENTRICULAR HYPOKINESIA [None]
